FAERS Safety Report 5761362-6 (Version None)
Quarter: 2008Q2

REPORT INFORMATION
  Report Type: 
  Country: None (occurrence: None)
  Receive Date: 20080527
  Receipt Date: 20070525
  Transmission Date: 20081010
  Serious: Yes (Other)
  Sender: FDA-Public Use
  Company Number: 2007322256

PATIENT
  Age: 4 Year
  Sex: Male

DRUGS (1)
  1. VISINE (OXYMETAZOLINE) [Suspect]
     Indication: ACCIDENTAL EXPOSURE
     Dosage: 1/2 BOTTLE ONCE,ORAL
     Route: 048
     Dates: start: 20070525, end: 20070525

REACTIONS (2)
  - ACCIDENTAL EXPOSURE [None]
  - WRONG DRUG ADMINISTERED [None]
